FAERS Safety Report 18674821 (Version 1)
Quarter: 2020Q4

REPORT INFORMATION
  Report Type: Spontaneous
  Country: US (occurrence: US)
  Receive Date: 20201228
  Receipt Date: 20201228
  Transmission Date: 20210114
  Serious: No
  Sender: FDA-Public Use
  Company Number: None

PATIENT
  Age: 30 Year
  Sex: Female
  Weight: 131.54 kg

DRUGS (1)
  1. PARAGARD T 380A [Suspect]
     Active Substance: COPPER

REACTIONS (10)
  - Back pain [None]
  - Abdominal distension [None]
  - Device dislocation [None]
  - Abdominal pain [None]
  - Menorrhagia [None]
  - Pain [None]
  - Fatigue [None]
  - Metrorrhagia [None]
  - Thrombosis [None]
  - Complication of device removal [None]

NARRATIVE: CASE EVENT DATE: 20201017
